FAERS Safety Report 9521827 (Version 1)
Quarter: 2013Q1

REPORT INFORMATION
  Report Type: Spontaneous
  Country: US (occurrence: None)
  Receive Date: 20130305
  Receipt Date: 20130305
  Transmission Date: 20140127
  Serious: Yes (Hospitalization)
  Sender: FDA-Public Use
  Company Number: 163-21880-12033127

PATIENT
  Age: 52 Year
  Sex: Male
  Weight: 91.63 kg

DRUGS (15)
  1. REVLIMID (LENALIDOMIDE) (CAPSULES) [Suspect]
     Indication: PLASMA CELL MYELOMA
     Route: 048
     Dates: start: 200910
  2. METOPROLOL (METOPROLOL) [Concomitant]
  3. ACYCLOVIR (ACICLOVIR) (ACICLOVIR) [Concomitant]
  4. OXYCODONE (OXYCODONE) [Concomitant]
  5. WELCHOL (COLESEVELAM HYDROCHLORIDE0 [Concomitant]
  6. DESIPRAMINE (DESIPRAMINE) (DESIPRAMINE) [Concomitant]
  7. PHOSLO (CALCIUM ACETATE) [Concomitant]
  8. MAG-OX (MAGNESIUM OXIDE) [Concomitant]
  9. RENA-VITE (NEPHROVITE) [Concomitant]
  10. NEXIUM [Concomitant]
  11. CALCIUM ACETATE (CALCIUM ACETATE) [Concomitant]
  12. FLOMAX (TAMSULOSIN HYDROCHLORIDE) [Concomitant]
  13. SENOKOT (SENNA FRUIT) [Concomitant]
  14. LORATIDINE [Concomitant]
  15. MAGNESIUM OXIDE (MAGNESIUM OXIDE0 [Concomitant]

REACTIONS (3)
  - Infection [None]
  - Pyrexia [None]
  - Platelet count decreased [None]
